FAERS Safety Report 23047935 (Version 4)
Quarter: 2023Q4

REPORT INFORMATION
  Report Type: Spontaneous
  Country: US (occurrence: US)
  Receive Date: 20231010
  Receipt Date: 20231104
  Transmission Date: 20240109
  Serious: Yes (Hospitalization, Other)
  Sender: FDA-Public Use
  Company Number: US-AUROBINDO-AUR-APL-2023-062670

PATIENT
  Age: 26 Year
  Sex: Male
  Weight: 83.9 kg

DRUGS (3)
  1. AMPHETAMINE SULFATE [Suspect]
     Active Substance: AMPHETAMINE SULFATE
     Indication: Product used for unknown indication
     Dosage: 20 MILLIGRAM
     Route: 065
  2. METHADONE [Suspect]
     Active Substance: METHADONE HYDROCHLORIDE
     Indication: Product used for unknown indication
     Dosage: 20-25 ML (200-250 MG) OF LIQUID
     Route: 065
  3. METHADONE [Suspect]
     Active Substance: METHADONE HYDROCHLORIDE
     Dosage: 5 MILLILITER, DAILY (BROTHER?S)
     Route: 065

REACTIONS (6)
  - Accidental overdose [Unknown]
  - Intentional product misuse [Unknown]
  - Apnoea [Unknown]
  - Cyanosis [Unknown]
  - Toxicity to various agents [Unknown]
  - Drug interaction [Unknown]
